FAERS Safety Report 9023863 (Version 2)
Quarter: 2013Q2

REPORT INFORMATION
  Report Type: Spontaneous
  Country: US (occurrence: US)
  Receive Date: 20130121
  Receipt Date: 20130404
  Transmission Date: 20140414
  Serious: Yes (Life-Threatening, Hospitalization)
  Sender: FDA-Public Use
  Company Number: US-ELI_LILLY_AND_COMPANY-US201202001969

PATIENT
  Age: 65 Year
  Sex: Female
  Weight: 57 kg

DRUGS (27)
  1. FORTEO [Suspect]
     Indication: OSTEOPOROSIS
     Dosage: 20 UG, QD
     Dates: start: 201112, end: 20120205
  2. FORTEO [Suspect]
     Dosage: 20 UG, QD
  3. FORTEO [Suspect]
     Dosage: 20 UG, QD
  4. FORTEO [Suspect]
     Dosage: 20 UG, QD
  5. FORTEO [Suspect]
     Dosage: 20 UG, QD
  6. FORTEO [Suspect]
     Dosage: 20 UG, QD
  7. CYMBALTA [Concomitant]
     Indication: DEPRESSION
     Dosage: 60 MG, QD
  8. CYMBALTA [Concomitant]
     Dosage: 60 TWICE A DAY
  9. NEXIUM [Concomitant]
  10. ESTRADIOL [Concomitant]
  11. SINGULAIR [Concomitant]
     Dosage: AT BEDTIME
  12. TOPROL [Concomitant]
  13. NORVASC [Concomitant]
  14. DIFLUCAN [Concomitant]
  15. XANAX [Concomitant]
     Dosage: UNK, PRN
  16. PERCOCET [Concomitant]
  17. POTASSIUM [Concomitant]
     Dosage: UNK, BID
  18. PYRIDIUM [Concomitant]
     Dosage: 100 MG, TID
  19. PROTONIX [Concomitant]
     Dosage: 40 MG, UNK
  20. VASOTEC                            /00574902/ [Concomitant]
     Dosage: 10 MG, BID
  21. METANX [Concomitant]
     Dosage: 1 TAB DAILY
  22. CATAPRES                           /00171101/ [Concomitant]
     Dosage: 0.1 MG EVERY 4 HOURS, PRN
  23. CLONIDINE HCL [Concomitant]
     Indication: HYPERTENSION
     Dosage: 0.1 MG EVERY FOUR, PRN
  24. ABILIFY [Concomitant]
     Dosage: 2 MG, UNK
  25. ALBUTEROL [Concomitant]
     Dosage: UNK, EVERY 6 HRS WHILE AWAKE
  26. BETHANECHOL [Concomitant]
     Dosage: 50 MG, TID
  27. NEURONTIN [Concomitant]
     Dosage: 300 MG, TID

REACTIONS (11)
  - Loss of consciousness [Recovering/Resolving]
  - Dyspnoea [Unknown]
  - Vomiting [Unknown]
  - Injection site bruising [Not Recovered/Not Resolved]
  - Nausea [Unknown]
  - Injection site pain [Unknown]
  - Blood pressure increased [Recovering/Resolving]
  - Feeling abnormal [Recovering/Resolving]
  - Carbon dioxide increased [Recovering/Resolving]
  - Blood potassium decreased [Recovering/Resolving]
  - Fall [Unknown]
